FAERS Safety Report 4796330-4 (Version None)
Quarter: 2005Q4

REPORT INFORMATION
  Report Type: 
  Country: None (occurrence: None)
  Receive Date: 20051007
  Receipt Date: 20050919
  Transmission Date: 20060501
  Serious: No
  Sender: FDA-Public Use
  Company Number: 200513074BCC

PATIENT
  Age: 61 Year
  Sex: Female
  Weight: 74.8435 kg

DRUGS (2)
  1. ALKA SELTZER EFFERVESCENT COLD [Suspect]
     Indication: NASOPHARYNGITIS
     Dosage: ORAL
     Route: 048
     Dates: start: 20020101
  2. CORGARD [Suspect]

REACTIONS (3)
  - CONDITION AGGRAVATED [None]
  - HEART RATE INCREASED [None]
  - MITRAL VALVE PROLAPSE [None]
